FAERS Safety Report 20851335 (Version 2)
Quarter: 2022Q2

REPORT INFORMATION
  Report Type: Spontaneous
  Country: JP (occurrence: JP)
  Receive Date: 20220519
  Receipt Date: 20220607
  Transmission Date: 20220720
  Serious: Yes (Hospitalization)
  Sender: FDA-Public Use
  Company Number: JP-Eisai-202113429_LEN-EC_P_1

PATIENT
  Age: 64 Year
  Sex: Female

DRUGS (3)
  1. LENVIMA [Suspect]
     Active Substance: LENVATINIB
     Indication: Endometrial cancer
     Route: 048
     Dates: start: 20220209, end: 2022
  2. LENVIMA [Suspect]
     Active Substance: LENVATINIB
     Route: 048
     Dates: start: 2022, end: 20220506
  3. KEYTRUDA [Suspect]
     Active Substance: PEMBROLIZUMAB
     Indication: Endometrial cancer
     Route: 041
     Dates: start: 20220209, end: 20220506

REACTIONS (5)
  - Hyperamylasaemia [Recovering/Resolving]
  - Neuropathy peripheral [Unknown]
  - Oral disorder [Unknown]
  - Gastrointestinal disorder [Unknown]
  - Device related infection [Unknown]

NARRATIVE: CASE EVENT DATE: 20220101
